FAERS Safety Report 5626478-3 (Version None)
Quarter: 2008Q1

REPORT INFORMATION
  Report Type: 
  Country: None (occurrence: None)
  Receive Date: 20080214
  Receipt Date: 20080207
  Transmission Date: 20080703
  Serious: Yes (Other)
  Sender: FDA-Public Use
  Company Number: US-JNJFOC-20080202085

PATIENT
  Age: 19 Year
  Sex: Female
  Weight: 61.24 kg

DRUGS (5)
  1. CONCERTA [Suspect]
     Indication: ATTENTION DEFICIT/HYPERACTIVITY DISORDER
     Route: 048
  2. LOESTRIN [Concomitant]
     Indication: MENSTRUAL DISORDER
  3. VITAMINS [Concomitant]
  4. CALCIUM [Concomitant]
  5. BIRTH CONTROL PILLS [Concomitant]
     Indication: MENSTRUAL DISORDER

REACTIONS (3)
  - CRYING [None]
  - DEPRESSION [None]
  - PERSONALITY CHANGE [None]
